FAERS Safety Report 15694192 (Version 1)
Quarter: 2018Q4

REPORT INFORMATION
  Report Type: Spontaneous
  Country: US (occurrence: US)
  Receive Date: 20181206
  Receipt Date: 20181206
  Transmission Date: 20190205
  Serious: Yes (Hospitalization, Other)
  Sender: FDA-Public Use
  Company Number: US-ANTARES PHARMA, INC.-2018-SPO-ME-0519

PATIENT
  Weight: 83.9 kg

DRUGS (9)
  1. METHOTREXATE. [Suspect]
     Active Substance: METHOTREXATE
     Dosage: 15 UNK, UNK
     Route: 037
  2. CYCLOPHOSPHAMIDE. [Suspect]
     Active Substance: CYCLOPHOSPHAMIDE
     Indication: LYMPHOCYTIC LEUKAEMIA
     Dosage: 2160 MG, UNK
     Route: 042
     Dates: start: 20170724
  3. THIOGUANINE [Suspect]
     Active Substance: THIOGUANINE
     Indication: LYMPHOCYTIC LEUKAEMIA
     Dosage: UNK
     Route: 048
     Dates: start: 20171206
  4. PEGASPARGASE [Suspect]
     Active Substance: PEGASPARGASE
     Indication: LYMPHOCYTIC LEUKAEMIA
     Dosage: 5325 IU, UNK
     Route: 042
     Dates: start: 20170521
  5. DOXORUBICIN [Suspect]
     Active Substance: DOXORUBICIN
     Indication: LYMPHOCYTIC LEUKAEMIA
     Dosage: 54.5 MG, UNK
     Route: 048
     Dates: start: 20171030
  6. METHOTREXATE. [Suspect]
     Active Substance: METHOTREXATE
     Indication: LYMPHOCYTIC LEUKAEMIA
     Dosage: 320 MG, UNK
     Route: 042
     Dates: start: 20170524
  7. RUXOLITINIB [Suspect]
     Active Substance: RUXOLITINIB
     Indication: LYMPHOCYTIC LEUKAEMIA
     Dosage: 100 MG, BID
     Route: 048
     Dates: start: 20170626
  8. VINCRISTINE [Suspect]
     Active Substance: VINCRISTINE
     Indication: LYMPHOCYTIC LEUKAEMIA
     Dosage: 2 MG, UNK
     Route: 042
     Dates: start: 20170626
  9. CYTARABINE. [Suspect]
     Active Substance: CYTARABINE
     Indication: LYMPHOCYTIC LEUKAEMIA
     Dosage: 162 MG, UNK
     Route: 042
     Dates: start: 20170627

REACTIONS (3)
  - Enterocolitis [Recovering/Resolving]
  - Dehydration [Recovered/Resolved]
  - Anaemia [Recovered/Resolved]

NARRATIVE: CASE EVENT DATE: 20180125
